FAERS Safety Report 6739178-3 (Version None)
Quarter: 2010Q2

REPORT INFORMATION
  Report Type: 
  Country: None (occurrence: None)
  Receive Date: 20100525
  Receipt Date: 20100519
  Transmission Date: 20101027
  Serious: Yes (Hospitalization)
  Sender: FDA-Public Use
  Company Number: US-CEPHALON-2010002833

PATIENT
  Sex: Female
  Weight: 138 kg

DRUGS (6)
  1. TRISENOX [Suspect]
     Indication: ENDOMETRIAL CANCER
     Route: 041
     Dates: start: 20100510, end: 20100512
  2. LASIX [Concomitant]
     Indication: HYPERTENSION
     Route: 048
     Dates: start: 19901010
  3. HYDROCHLOROTHIAZIDE [Concomitant]
     Indication: HYPERTENSION
     Route: 048
     Dates: start: 20050601
  4. DIOVAN [Concomitant]
     Indication: HYPERTENSION
     Route: 048
     Dates: start: 20050601
  5. LOVENOX [Concomitant]
     Indication: DEEP VEIN THROMBOSIS
     Route: 058
     Dates: start: 20090315
  6. LOVENOX [Concomitant]
     Indication: PULMONARY EMBOLISM

REACTIONS (1)
  - WEIGHT INCREASED [None]
